FAERS Safety Report 8016938-2 (Version None)
Quarter: 2012Q1

REPORT INFORMATION
  Report Type: 
  Country: None (occurrence: None)
  Receive Date: 20120102
  Receipt Date: 20111222
  Transmission Date: 20120608
  Serious: Yes (Hospitalization)
  Sender: FDA-Public Use
  Company Number: PHFR2011GB007370

PATIENT
  Sex: Male

DRUGS (2)
  1. DIAZEPAM [Suspect]
     Dosage: UNK
  2. CLOZARIL [Suspect]
     Indication: SCHIZOPHRENIA
     Dosage: UNK
     Route: 048
     Dates: start: 20080703

REACTIONS (2)
  - OVERDOSE [None]
  - INCOHERENT [None]
